FAERS Safety Report 6934955-8 (Version None)
Quarter: 2010Q3

REPORT INFORMATION
  Report Type: 
  Country: None (occurrence: None)
  Receive Date: 20100821
  Receipt Date: 20100813
  Transmission Date: 20110219
  Serious: Yes (Death, Hospitalization)
  Sender: FDA-Public Use
  Company Number: PHFR2010GB02137

PATIENT

DRUGS (1)
  1. ZOLEDRONIC [Suspect]

REACTIONS (3)
  - ATRIAL FIBRILLATION [None]
  - DEATH [None]
  - HEART RATE DECREASED [None]
